FAERS Safety Report 17307098 (Version 1)
Quarter: 2020Q1

REPORT INFORMATION
  Report Type: Spontaneous
  Country: US (occurrence: US)
  Receive Date: 20200123
  Receipt Date: 20200123
  Transmission Date: 20200409
  Serious: No
  Sender: FDA-Public Use
  Company Number: US-JNJFOC-20200115153

PATIENT
  Age: 64 Year
  Sex: Male
  Weight: 102.15 kg

DRUGS (2)
  1. MENS ROGAINE EXTRA STRENGTH [Suspect]
     Active Substance: MINOXIDIL
     Indication: ALOPECIA
     Dosage: SUGGESTED AMOUNT IN THE LITERATURE?THE PATIENT USED THE PRODUCT FOR LAST TIME ON 07-JAN-2020.
     Route: 061
     Dates: start: 20190904
  2. MENS ROGAINE EXTRA STRENGTH [Suspect]
     Active Substance: MINOXIDIL
     Dosage: SUGGESTED AMOUNT IN THE LITERATURE?THE PATIENT USED THE PRODUCT FOR LAST TIME ON 07-JAN-2020.
     Route: 061
     Dates: start: 20190904

REACTIONS (3)
  - Expired product administered [Unknown]
  - Off label use [Unknown]
  - Product use in unapproved indication [Unknown]

NARRATIVE: CASE EVENT DATE: 20190904
